FAERS Safety Report 4520479-4 (Version None)
Quarter: 2004Q4

REPORT INFORMATION
  Report Type: 
  Country: None (occurrence: None)
  Receive Date: 20041203
  Receipt Date: 20041124
  Transmission Date: 20050328
  Serious: Yes (Hospitalization)
  Sender: FDA-Public Use
  Company Number: 2004097481

PATIENT
  Age: 67 Year
  Sex: Male

DRUGS (7)
  1. MICRONASE [Suspect]
     Indication: DIABETES MELLITUS
     Dosage: 15 MG (15 MG, DAILY), ORAL
     Route: 048
     Dates: start: 20040919, end: 20041116
  2. BLINDED THERAPY (BLINDED THERAPY) [Suspect]
     Indication: DIABETES MELLITUS
     Dosage: ORAL
     Route: 048
     Dates: start: 20030318, end: 20041116
  3. SIMBVASTATIN (SIMVASTATIN) [Concomitant]
  4. QUINAPRIL HCL [Concomitant]
  5. AMLODIPINE BESYLATE [Concomitant]
  6. CETIRIXINE HYDROCHLORIDE (CETIRIZINE HYDROCHLORIDE) [Concomitant]
  7. FEXOFENADINE HYDROCHLORIDE [Concomitant]

REACTIONS (3)
  - CARDIAC FAILURE CONGESTIVE [None]
  - MYOCARDIAL INFARCTION [None]
  - PULMONARY OEDEMA [None]
